FAERS Safety Report 4524081-X (Version None)
Quarter: 2004Q4

REPORT INFORMATION
  Report Type: 
  Country: None (occurrence: None)
  Receive Date: 20041209
  Receipt Date: 20041129
  Transmission Date: 20050328
  Serious: Yes (Hospitalization, Other)
  Sender: FDA-Public Use
  Company Number: 2004047673

PATIENT
  Age: 19 Year
  Sex: Female

DRUGS (2)
  1. PHENYTOIN SODIUM [Suspect]
     Indication: EPILEPSY
     Dosage: 200 MG (100 MG, 2 IN 1 D), ORAL
     Route: 048
     Dates: start: 20020901, end: 20021017
  2. CIPROFLOXACIN [Suspect]
     Indication: INFECTION
     Dosage: 1000 MG (500 MG, 2 IN 1 D), ORAL
     Route: 048
     Dates: start: 20021022, end: 20021026

REACTIONS (12)
  - ANOREXIA [None]
  - DIZZINESS [None]
  - DRUG HYPERSENSITIVITY [None]
  - HEPATITIS [None]
  - HEPATOSPLENOMEGALY [None]
  - INFECTIOUS MONONUCLEOSIS [None]
  - LEUKOCYTOSIS [None]
  - MONOCYTOSIS [None]
  - NORMOCHROMIC NORMOCYTIC ANAEMIA [None]
  - PRURITUS [None]
  - PSEUDOMONAL BACTERAEMIA [None]
  - RASH MORBILLIFORM [None]
